FAERS Safety Report 7756444-3 (Version None)
Quarter: 2011Q3

REPORT INFORMATION
  Report Type: 
  Country: None (occurrence: None)
  Receive Date: 20110915
  Receipt Date: 20110915
  Transmission Date: 20111222
  Serious: No
  Sender: FDA-Public Use
  Company Number: None

PATIENT
  Age: 72 Year
  Sex: Male
  Weight: 63 kg

DRUGS (4)
  1. DIVALPROEX SODIUM [Concomitant]
  2. PALIPERIDONE [Suspect]
     Indication: SCHIZOAFFECTIVE DISORDER
     Dosage: 6MG DAILY
     Dates: start: 20110809, end: 20110812
  3. DONEPEZIL HCL [Concomitant]
  4. METFORMIN [Concomitant]

REACTIONS (1)
  - CONVULSION [None]
